FAERS Safety Report 7624192-6 (Version None)
Quarter: 2011Q3

REPORT INFORMATION
  Report Type: 
  Country: None (occurrence: None)
  Receive Date: 20110720
  Receipt Date: 20110720
  Transmission Date: 20111222
  Serious: Yes (Life-Threatening, Hospitalization, Other)
  Sender: FDA-Public Use
  Company Number: None

PATIENT
  Age: 77 Year
  Sex: Male
  Weight: 95.254 kg

DRUGS (1)
  1. LOVASTATIN [Suspect]
     Indication: BLOOD CHOLESTEROL INCREASED
     Dosage: 1X DAY
     Route: 048
     Dates: start: 20031110, end: 20091229

REACTIONS (4)
  - MUSCLE ENZYME INCREASED [None]
  - OEDEMA PERIPHERAL [None]
  - BALANCE DISORDER [None]
  - ABASIA [None]
